FAERS Safety Report 5007614-9 (Version None)
Quarter: 2006Q2

REPORT INFORMATION
  Report Type: 
  Country: None (occurrence: None)
  Receive Date: 20060522
  Receipt Date: 20060424
  Transmission Date: 20061013
  Serious: Yes (Death)
  Sender: FDA-Public Use
  Company Number: CZ-BRISTOL-MYERS SQUIBB COMPANY-13355771

PATIENT
  Age: 72 Year
  Sex: Female

DRUGS (9)
  1. AMIKIN [Suspect]
     Indication: INFECTION PROPHYLAXIS
     Dates: start: 20030729
  2. CIPLOX [Concomitant]
     Route: 042
     Dates: start: 20030601
  3. MEFOXIN [Concomitant]
     Route: 051
     Dates: start: 20030701
  4. PRIMOTREN [Concomitant]
  5. ENTIZOL [Concomitant]
     Route: 051
     Dates: start: 20030701
  6. AUGMENTIN '125' [Concomitant]
     Indication: PYREXIA
     Dates: start: 20030601
  7. TAZOCIN [Concomitant]
  8. RIFAMPICIN [Concomitant]
     Dates: start: 20030801
  9. ISONIAZID [Concomitant]
     Dates: start: 20030801

REACTIONS (2)
  - GENERAL PHYSICAL HEALTH DETERIORATION [None]
  - WOUND DEHISCENCE [None]
